FAERS Safety Report 4397147-5 (Version None)
Quarter: 2004Q3

REPORT INFORMATION
  Report Type: 
  Country: None (occurrence: None)
  Receive Date: 20040714
  Receipt Date: 20040113
  Transmission Date: 20050211
  Serious: Yes (Life-Threatening, Hospitalization)
  Sender: FDA-Public Use
  Company Number: BR-ROCHE-355750

PATIENT
  Age: 18 Year
  Sex: Male
  Weight: 61.2 kg

DRUGS (26)
  1. DACLIZUMAB [Suspect]
     Route: 042
     Dates: start: 20031016, end: 20031016
  2. DACLIZUMAB [Suspect]
     Route: 042
     Dates: start: 20031030, end: 20031211
  3. MYCOPHENOLATE MOFETIL [Suspect]
     Route: 048
     Dates: start: 20031015
  4. MYCOPHENOLATE MOFETIL [Suspect]
     Route: 048
     Dates: start: 20031211
  5. MYCOPHENOLATE MOFETIL [Suspect]
     Route: 048
     Dates: start: 20031216
  6. MYCOPHENOLATE MOFETIL [Suspect]
     Route: 048
     Dates: start: 20040119
  7. MYCOPHENOLATE MOFETIL [Suspect]
     Route: 048
     Dates: start: 20040203, end: 20040206
  8. TACROLIMUS [Suspect]
     Route: 048
     Dates: start: 20031015
  9. TACROLIMUS [Suspect]
     Route: 048
     Dates: start: 20031022
  10. TACROLIMUS [Suspect]
     Route: 048
     Dates: start: 20031031
  11. TACROLIMUS [Suspect]
     Route: 048
     Dates: start: 20040119
  12. PREDNISONE [Suspect]
     Route: 048
     Dates: start: 20031015
  13. PREDNISONE [Suspect]
     Route: 048
     Dates: start: 20031110
  14. PREDNISONE [Suspect]
     Route: 048
     Dates: start: 20031113
  15. PREDNISONE [Suspect]
     Route: 048
     Dates: start: 20031118
  16. PREDNISONE [Suspect]
     Route: 048
     Dates: start: 20031127
  17. PREDNISONE [Suspect]
     Route: 048
     Dates: start: 20031204
  18. PREDNISONE [Suspect]
     Route: 048
     Dates: start: 20031211
  19. PREDNISONE [Suspect]
     Route: 048
     Dates: start: 20031230
  20. PREDNISONE [Suspect]
     Route: 048
     Dates: start: 20040106
  21. NIFEDIPINE [Concomitant]
     Route: 048
     Dates: start: 20031020
  22. TRIMETHOPRIM/SULPHAMETHOXAZOLE [Concomitant]
     Route: 048
     Dates: start: 20031019
  23. RANITIDINE [Concomitant]
     Route: 048
     Dates: start: 20031015
  24. PROPRANOLOL [Concomitant]
     Route: 048
     Dates: start: 20031019
  25. HEMAX [Concomitant]
     Route: 058
     Dates: start: 20031211
  26. NORIPURUM [Concomitant]
     Route: 042
     Dates: start: 20031211

REACTIONS (4)
  - CONVULSION [None]
  - CYTOMEGALOVIRUS INFECTION [None]
  - HYPERTENSIVE ENCEPHALOPATHY [None]
  - PARVOVIRUS INFECTION [None]
